FAERS Safety Report 7902072-6 (Version None)
Quarter: 2011Q4

REPORT INFORMATION
  Report Type: 
  Country: None (occurrence: None)
  Receive Date: 20111108
  Receipt Date: 20111026
  Transmission Date: 20120403
  Serious: Yes (Hospitalization)
  Sender: FDA-Public Use
  Company Number: US-BAYER-2011-048260

PATIENT
  Age: 42 Year
  Sex: Female
  Weight: 61.224 kg

DRUGS (6)
  1. PROZAC [Concomitant]
  2. YAZ [Suspect]
     Indication: PREMENSTRUAL SYNDROME
     Dosage: UNK
     Dates: start: 20080101, end: 20090101
  3. PREDNISONE [Concomitant]
     Indication: SCLERODERMA
     Dosage: UNK UNK, QD
     Route: 048
  4. PROPOXYPHENE HYDROCHLORIDE [Concomitant]
     Indication: PAIN
  5. IBUPROFEN (ADVIL) [Concomitant]
     Indication: HEADACHE
  6. CYCLOBENZAPRINE [Concomitant]
     Indication: MUSCLE RELAXANT THERAPY
     Dosage: 10 MG, UNK

REACTIONS (3)
  - PAIN [None]
  - DEEP VEIN THROMBOSIS [None]
  - INJURY [None]
